FAERS Safety Report 23002872 (Version 2)
Quarter: 2024Q3

REPORT INFORMATION
  Report Type: Spontaneous
  Country: FR (occurrence: FR)
  Receive Date: 20230928
  Receipt Date: 20240701
  Transmission Date: 20241016
  Serious: Yes (Death, Life-Threatening, Hospitalization, Other)
  Sender: PFIZER
  Company Number: None

PATIENT
  Age: 81 Year
  Sex: Male

DRUGS (7)
  1. LANSOPRAZOLE [Suspect]
     Active Substance: LANSOPRAZOLE
     Dosage: UNK
     Route: 048
     Dates: start: 20211004, end: 20211104
  2. MEROPENEM [Suspect]
     Active Substance: MEROPENEM
     Indication: Antibiotic therapy
     Dosage: UNK
     Route: 048
     Dates: start: 20211021, end: 20211105
  3. FLAGYL [Suspect]
     Active Substance: METRONIDAZOLE\METRONIDAZOLE HYDROCHLORIDE
     Indication: Antibiotic therapy
     Dosage: UNK
     Route: 048
     Dates: start: 20211005, end: 20211112
  4. CEFOTAXIME SODIUM [Suspect]
     Active Substance: CEFOTAXIME SODIUM
     Indication: Antibiotic therapy
     Dosage: UNK
     Route: 048
     Dates: start: 20211005, end: 20211012
  5. LOVENOX [Suspect]
     Active Substance: ENOXAPARIN SODIUM
     Indication: Anticoagulant therapy
     Dosage: UNK
     Route: 058
     Dates: start: 20210929, end: 20211105
  6. IOBITRIDOL [Suspect]
     Active Substance: IOBITRIDOL
     Indication: Magnetic resonance imaging
     Dosage: UNK
     Route: 042
     Dates: start: 20211015, end: 20211015
  7. IOBITRIDOL [Suspect]
     Active Substance: IOBITRIDOL
     Dosage: UNK
     Route: 042
     Dates: start: 20211026, end: 20211026

REACTIONS (2)
  - Toxic epidermal necrolysis [Fatal]
  - Off label use [Unknown]

NARRATIVE: CASE EVENT DATE: 20211105
